FAERS Safety Report 19011671 (Version 1)
Quarter: 2021Q1

REPORT INFORMATION
  Report Type: Spontaneous
  Country: US (occurrence: US)
  Receive Date: 20210315
  Receipt Date: 20210315
  Transmission Date: 20210420
  Serious: Yes (Death, Hospitalization)
  Sender: FDA-Public Use
  Company Number: None

PATIENT
  Age: 77 Year
  Sex: Male

DRUGS (4)
  1. CLONAZEPAM. [Concomitant]
     Active Substance: CLONAZEPAM
  2. LOSARTAN. [Concomitant]
     Active Substance: LOSARTAN
  3. MIRAPEX [Concomitant]
     Active Substance: PRAMIPEXOLE DIHYDROCHLORIDE
  4. NUPLAZID [Suspect]
     Active Substance: PIMAVANSERIN TARTRATE
     Indication: PARKINSONISM
     Dosage: ?
     Route: 048
     Dates: start: 20200623, end: 20210309

REACTIONS (4)
  - Dyspnoea [None]
  - Myocardial infarction [None]
  - Fatigue [None]
  - Fall [None]

NARRATIVE: CASE EVENT DATE: 20210309
